FAERS Safety Report 9319615 (Version 10)
Quarter: 2015Q3

REPORT INFORMATION
  Report Type: Spontaneous
  Country: US (occurrence: US)
  Receive Date: 20130530
  Receipt Date: 20150731
  Transmission Date: 20151125
  Serious: Yes (Hospitalization, Other)
  Sender: FDA-Public Use
  Company Number: US-GLAXOSMITHKLINE-A1013088A

PATIENT

DRUGS (11)
  1. FLOLAN [Suspect]
     Active Substance: EPOPROSTENOL SODIUM
     Dosage: 33 NG/KG/MIN, CONCENTRATION 45,000 NG/ML, PUMP RATE 93 ML/DAY, VIAT STRENGTH 1.5 MG
     Dates: start: 20120705
  2. FLOLAN [Suspect]
     Active Substance: EPOPROSTENOL SODIUM
     Dosage: UNK, CO
  3. FLOLAN [Suspect]
     Active Substance: EPOPROSTENOL SODIUM
     Dosage: 33 DF, U
  4. LETAIRIS [Concomitant]
     Active Substance: AMBRISENTAN
  5. FLOLAN [Suspect]
     Active Substance: EPOPROSTENOL SODIUM
     Indication: PULMONARY ARTERIAL HYPERTENSION
     Dosage: DOSE: 35 NG/KG/MINCONCENTRATION: 60,000 NG/MLVIAL STRENGTH: 1.5 MGDOSE: 33 NG/KG/MINCONCENTRATI[...]
     Route: 042
     Dates: start: 20120705
  6. FLOLAN [Suspect]
     Active Substance: EPOPROSTENOL SODIUM
     Dosage: 33 NG/KG/MIN
  7. FLOLAN [Suspect]
     Active Substance: EPOPROSTENOL SODIUM
     Dosage: 33 NG/KG/MIN CONTINUOUS; CONCENTRATION: 45,000 NG/ML; PUMP RATE: 93 ML/DAY; VIAL STRENGTH: 1.5 MG
     Dates: start: 20120706
  8. REVATIO [Concomitant]
     Active Substance: SILDENAFIL CITRATE
  9. FLOLAN [Suspect]
     Active Substance: EPOPROSTENOL SODIUM
     Dosage: UNK
  10. FLOLAN [Suspect]
     Active Substance: EPOPROSTENOL SODIUM
     Dosage: 33 NG/KG/MIN CONCENTRATION 45,000 NG/ML PUMP RATE 93 ML/DAY VIAL STRENGTH 1.5 MG
     Dates: end: 201506
  11. FLOLAN [Suspect]
     Active Substance: EPOPROSTENOL SODIUM
     Dosage: 33 NG/KG/MIN, CO
     Route: 042
     Dates: start: 20120706

REACTIONS (10)
  - Cardiac disorder [Unknown]
  - Amnesia [Unknown]
  - Hyperaesthesia [Unknown]
  - Pulmonary hypertension [Unknown]
  - Hospitalisation [Unknown]
  - Respiratory distress [Unknown]
  - Chest pain [Unknown]
  - Transplant [Unknown]
  - Post procedural complication [Unknown]
  - Angina pectoris [Unknown]

NARRATIVE: CASE EVENT DATE: 20141214
